FAERS Safety Report 6168030-X (Version None)
Quarter: 2009Q2

REPORT INFORMATION
  Report Type: 
  Country: None (occurrence: None)
  Receive Date: 20090423
  Receipt Date: 20090423
  Transmission Date: 20091009
  Serious: Yes (Other)
  Sender: FDA-Public Use
  Company Number: None

PATIENT
  Age: 49 Year
  Sex: Male
  Weight: 77.1115 kg

DRUGS (2)
  1. DICLOFENAC SODIUM [Suspect]
     Indication: BACK PAIN
     Dosage: 1 TABLET TWICE A DAY PO
     Route: 048
     Dates: start: 20090409, end: 20090410
  2. DICLOFENAC SODIUM [Suspect]
     Indication: BACK PAIN
     Dosage: 1 TABLET TWICE A DAY PO
     Route: 048
     Dates: start: 20090419, end: 20090420

REACTIONS (8)
  - ABDOMINAL PAIN UPPER [None]
  - BURNING SENSATION [None]
  - CHILLS [None]
  - MALAISE [None]
  - PAIN [None]
  - PRODUCT QUALITY ISSUE [None]
  - SLEEP DISORDER [None]
  - TESTICULAR PAIN [None]
